FAERS Safety Report 8132728-4 (Version None)
Quarter: 2012Q1

REPORT INFORMATION
  Report Type: 
  Country: None (occurrence: None)
  Receive Date: 20120213
  Receipt Date: 20120208
  Transmission Date: 20120608
  Serious: Yes (Other)
  Sender: FDA-Public Use
  Company Number: US-PFIZER INC-2012034960

PATIENT
  Sex: Female
  Weight: 47.166 kg

DRUGS (5)
  1. FOLBIC [Concomitant]
     Dosage: UNK
  2. TEMAZEPAM [Concomitant]
     Dosage: UNK
  3. POTASSIUM [Concomitant]
     Dosage: UNK
  4. LYRICA [Suspect]
     Indication: NEUROPATHY PERIPHERAL
     Dosage: 75 MG, 2X/DAY
     Route: 048
     Dates: start: 20090101
  5. DOXEPIN [Concomitant]
     Dosage: UNK

REACTIONS (1)
  - SJOGREN'S SYNDROME [None]
